FAERS Safety Report 8610339-1 (Version None)
Quarter: 2012Q3

REPORT INFORMATION
  Report Type: 
  Country: None (occurrence: None)
  Receive Date: 20120822
  Receipt Date: 20120815
  Transmission Date: 20120928
  Serious: No
  Sender: FDA-Public Use
  Company Number: PHEH2012US016081

PATIENT
  Sex: Female

DRUGS (4)
  1. SIMVASTATIN [Concomitant]
     Dosage: 20 MG, UNK
  2. ASPIRIN [Concomitant]
  3. MULTI-VITAMINS [Concomitant]
  4. TASIGNA [Suspect]
     Dosage: 150 MG, BID

REACTIONS (4)
  - RASH [None]
  - NAUSEA [None]
  - PRURITUS [None]
  - EYE PAIN [None]
